FAERS Safety Report 5803900-0 (Version None)
Quarter: 2008Q3

REPORT INFORMATION
  Report Type: 
  Country: None (occurrence: None)
  Receive Date: 20080707
  Receipt Date: 20080620
  Transmission Date: 20090109
  Serious: Yes (Hospitalization)
  Sender: FDA-Public Use
  Company Number: S08-NOR-02259-01

PATIENT
  Age: 81 Year
  Sex: Male

DRUGS (10)
  1. CITALOPRAM HYDROBROMIDE [Suspect]
     Dosage: 10 MG QD PO
     Route: 048
     Dates: start: 20080523, end: 20080608
  2. CITALOPRAM HYDROBROMIDE [Suspect]
     Dosage: 20 MG QD PO
     Route: 048
     Dates: start: 20080609
  3. CITALOPRAM HYDROBROMIDE [Suspect]
     Dosage: 20 MG QD PO
     Route: 048
     Dates: end: 20080522
  4. WELLBUTRIN [Suspect]
     Indication: DEPRESSION
     Dosage: 150 MG QD PO
     Route: 048
     Dates: start: 20080511, end: 20080528
  5. FRAGMIN [Concomitant]
  6. PARACET (PARACETAMOL) [Concomitant]
  7. SELEXID (PIVMECILLINAM HYDROCHLORIDE) [Concomitant]
  8. MONOKET OD (ISOSORBIDE MONONITRATE) [Concomitant]
  9. PREDNISOLONE [Concomitant]
  10. METOPROLOL SUCCINATE [Concomitant]

REACTIONS (7)
  - CONDITION AGGRAVATED [None]
  - DEPRESSION [None]
  - FALL [None]
  - FATIGUE [None]
  - LOSS OF CONSCIOUSNESS [None]
  - PETIT MAL EPILEPSY [None]
  - SUBARACHNOID HAEMORRHAGE [None]
